FAERS Safety Report 9923963 (Version 2)
Quarter: 2014Q1

REPORT INFORMATION
  Report Type: Spontaneous
  Country: GB (occurrence: GB)
  Receive Date: 20140225
  Receipt Date: 20140314
  Transmission Date: 20141002
  Serious: Yes (Other)
  Sender: FDA-Public Use
  Company Number: PHHY2014GB019148

PATIENT
  Age: 6 Decade
  Sex: Male
  Weight: 76.2 kg

DRUGS (2)
  1. RAMIPRIL [Suspect]
     Indication: HYPERTENSION
     Route: 048
     Dates: start: 20090101, end: 20120101
  2. DOXAZOSIN [Concomitant]

REACTIONS (3)
  - Lacrimation increased [Recovered/Resolved with Sequelae]
  - Head banging [Recovered/Resolved with Sequelae]
  - Parosmia [Recovered/Resolved with Sequelae]
